FAERS Safety Report 4918069-4 (Version None)
Quarter: 2006Q1

REPORT INFORMATION
  Report Type: 
  Country: None (occurrence: None)
  Receive Date: 20060215
  Receipt Date: 20060203
  Transmission Date: 20060701
  Serious: Yes (Other)
  Sender: FDA-Public Use
  Company Number: PAR_0505_2006

PATIENT
  Age: 16 Year
  Sex: Female

DRUGS (3)
  1. MOTRIN [Suspect]
     Dosage: 400 MG QID PO
     Route: 048
  2. CIPRO [Suspect]
     Dosage: 1 G QDAY PO
     Route: 048
  3. ORAL CONTRACEPTIVE [Concomitant]

REACTIONS (2)
  - RENAL FAILURE ACUTE [None]
  - RENAL TUBULAR NECROSIS [None]
